FAERS Safety Report 9728562 (Version 1)
Quarter: 2013Q4

REPORT INFORMATION
  Report Type: Spontaneous
  Country: CA (occurrence: CA)
  Receive Date: 20131204
  Receipt Date: 20131204
  Transmission Date: 20140711
  Serious: Yes (Other)
  Sender: FDA-Public Use
  Company Number: CA-ASTRAZENECA-2013SE86871

PATIENT
  Age: 79 Year
  Sex: Female

DRUGS (5)
  1. CRESTOR [Suspect]
     Route: 048
  2. AMLODIPINE [Concomitant]
  3. ASA [Concomitant]
  4. BISOPROLOL [Concomitant]
  5. TYLENOL [Concomitant]

REACTIONS (6)
  - Acne [Not Recovered/Not Resolved]
  - Chromaturia [Not Recovered/Not Resolved]
  - Urine abnormality [Not Recovered/Not Resolved]
  - Abdominal pain upper [Not Recovered/Not Resolved]
  - Amnesia [Not Recovered/Not Resolved]
  - Pruritus [Not Recovered/Not Resolved]
